FAERS Safety Report 4745855-6 (Version None)
Quarter: 2005Q3

REPORT INFORMATION
  Report Type: 
  Country: None (occurrence: None)
  Receive Date: 20050816
  Receipt Date: 20050330
  Transmission Date: 20060218
  Serious: Yes (Hospitalization, Disabling)
  Sender: FDA-Public Use
  Company Number: PHHO2005JP05338

PATIENT
  Age: 71 Year
  Sex: Male

DRUGS (5)
  1. LOCHOL [Suspect]
     Indication: HYPERCHOLESTEROLAEMIA
     Route: 048
     Dates: start: 20020107
  2. ALESION [Suspect]
     Dates: start: 20020107
  3. NORVASC [Concomitant]
  4. YOHTIAZEM [Concomitant]
  5. POLARAMINE [Concomitant]
     Indication: RHINITIS

REACTIONS (3)
  - BRAIN STEM INFARCTION [None]
  - DYSARTHRIA [None]
  - HEMIPLEGIA [None]
